FAERS Safety Report 6361669-8 (Version None)
Quarter: 2009Q3

REPORT INFORMATION
  Report Type: 
  Country: None (occurrence: None)
  Receive Date: 20090918
  Receipt Date: 20090803
  Transmission Date: 20100115
  Serious: Yes (Hospitalization)
  Sender: FDA-Public Use
  Company Number: NL-MERCK-0909NLD00020

PATIENT

DRUGS (1)
  1. ZOCOR [Suspect]
     Route: 065

REACTIONS (1)
  - WITHDRAWAL BLEED [None]
